FAERS Safety Report 5568732-X (Version None)
Quarter: 2007Q4

REPORT INFORMATION
  Report Type: 
  Country: None (occurrence: None)
  Receive Date: 20071220
  Receipt Date: 20061206
  Transmission Date: 20080405
  Serious: No
  Sender: FDA-Public Use
  Company Number: A0630631A

PATIENT
  Age: 20 Year
  Sex: Female

DRUGS (1)
  1. AVODART [Suspect]
     Indication: ACCIDENTAL EXPOSURE
     Route: 062
     Dates: start: 20061206, end: 20061206

REACTIONS (2)
  - ACCIDENTAL EXPOSURE [None]
  - DRUG EXPOSURE DURING PREGNANCY [None]
